FAERS Safety Report 19804340 (Version 1)
Quarter: 2021Q3

REPORT INFORMATION
  Report Type: Spontaneous
  Country: US (occurrence: US)
  Receive Date: 20210908
  Receipt Date: 20210908
  Transmission Date: 20211014
  Serious: No
  Sender: FDA-Public Use
  Company Number: US-FARMAPROD-202105-0752

PATIENT
  Age: 55 Year
  Sex: Male

DRUGS (4)
  1. PRED FORTE [Concomitant]
     Active Substance: PREDNISOLONE ACETATE
     Indication: HERPES OPHTHALMIC
     Route: 061
     Dates: start: 201606
  2. TIMOLOL. [Concomitant]
     Active Substance: TIMOLOL
     Indication: OPHTHALMIC HERPES ZOSTER
     Route: 061
     Dates: start: 2018
  3. RESTASIS [Concomitant]
     Active Substance: CYCLOSPORINE
     Route: 061
     Dates: start: 2019
  4. OXERVATE [Suspect]
     Active Substance: CENEGERMIN-BKBJ
     Indication: KERATITIS
     Route: 047
     Dates: start: 20210408, end: 20210517

REACTIONS (5)
  - Ocular hyperaemia [Recovered/Resolved]
  - Eye pain [Not Recovered/Not Resolved]
  - Vision blurred [Not Recovered/Not Resolved]
  - Herpes ophthalmic [Recovered/Resolved]
  - Overdose [Unknown]

NARRATIVE: CASE EVENT DATE: 20210517
